FAERS Safety Report 7758438-0 (Version None)
Quarter: 2011Q3

REPORT INFORMATION
  Report Type: 
  Country: None (occurrence: None)
  Receive Date: 20110919
  Receipt Date: 20110915
  Transmission Date: 20111222
  Serious: No
  Sender: FDA-Public Use
  Company Number: US-PFIZER INC-2011219100

PATIENT
  Sex: Male

DRUGS (2)
  1. ANTIVERT [Suspect]
     Indication: VERTIGO
     Dosage: UNK
  2. ANTIVERT [Suspect]
     Indication: MOTION SICKNESS

REACTIONS (3)
  - PROSTATIC DISORDER [None]
  - CHEST DISCOMFORT [None]
  - DYSPNOEA [None]
